FAERS Safety Report 10063226 (Version 1)
Quarter: 2014Q2

REPORT INFORMATION
  Report Type: Spontaneous
  Country: IT (occurrence: IT)
  Receive Date: 20140407
  Receipt Date: 20140407
  Transmission Date: 20141212
  Serious: Yes (Hospitalization)
  Sender: FDA-Public Use
  Company Number: IT-TEVA-472409ISR

PATIENT
  Age: 66 Year
  Sex: Female

DRUGS (2)
  1. EPIRUBICIN [Suspect]
     Indication: BREAST CANCER
     Dosage: 80 MG CYCLICAL
     Route: 042
     Dates: start: 20140313, end: 20140313
  2. CICLOFOSFAMIDE [Suspect]
     Indication: BREAST CANCER
     Dosage: 850 MG CYCLICAL
     Route: 042
     Dates: start: 20140313, end: 20140313

REACTIONS (1)
  - Arrhythmia [Recovered/Resolved]
